FAERS Safety Report 25245992 (Version 10)
Quarter: 2025Q4

REPORT INFORMATION
  Report Type: Spontaneous
  Country: US (occurrence: US)
  Receive Date: 20250428
  Receipt Date: 20251231
  Transmission Date: 20260118
  Serious: No
  Sender: TRAVERE THERAPEUTICS
  Company Number: US-TRAVERE-2025TVT00317

PATIENT
  Age: 15 Year
  Sex: Male

DRUGS (2)
  1. FILSPARI [Suspect]
     Active Substance: SPARSENTAN
     Indication: Type III immune complex mediated reaction
     Route: 048
     Dates: start: 20250210, end: 2025
  2. FILSPARI [Suspect]
     Active Substance: SPARSENTAN
     Route: 048
     Dates: start: 2025

REACTIONS (3)
  - Norovirus infection [Unknown]
  - Nasopharyngitis [Recovering/Resolving]
  - Off label use [Unknown]
